FAERS Safety Report 7461961-X (Version None)
Quarter: 2011Q2

REPORT INFORMATION
  Report Type: 
  Country: None (occurrence: None)
  Receive Date: 20110506
  Receipt Date: 20101208
  Transmission Date: 20111010
  Serious: No
  Sender: FDA-Public Use
  Company Number: US-BAYER-2010-006737

PATIENT
  Age: 48 Year
  Sex: Female

DRUGS (1)
  1. AVELOX [Suspect]
     Dosage: 400 MG, QD
     Route: 048

REACTIONS (2)
  - PAIN IN EXTREMITY [None]
  - OEDEMA PERIPHERAL [None]
